FAERS Safety Report 4873847-5 (Version None)
Quarter: 2006Q1

REPORT INFORMATION
  Report Type: 
  Country: None (occurrence: None)
  Receive Date: 20060103
  Receipt Date: 20060103
  Transmission Date: 20060701
  Serious: Yes (Hospitalization)
  Sender: FDA-Public Use
  Company Number: None

PATIENT
  Age: 81 Year
  Sex: Male
  Weight: 78 kg

DRUGS (1)
  1. INTEGRILIN [Suspect]
     Indication: CORONARY ANGIOPLASTY
     Dosage: 9.4 MG/HR IV DRIP
     Route: 041
     Dates: start: 20051230, end: 20051230

REACTIONS (2)
  - INFUSION RELATED REACTION [None]
  - THROMBOCYTOPENIA [None]
